FAERS Safety Report 9283230 (Version 2)
Quarter: 2013Q2

REPORT INFORMATION
  Report Type: Spontaneous
  Country: KR (occurrence: KR)
  Receive Date: 20130510
  Receipt Date: 20130516
  Transmission Date: 20140414
  Serious: Yes (Hospitalization)
  Sender: FDA-Public Use
  Company Number: KR-ELI_LILLY_AND_COMPANY-KR201305000768

PATIENT
  Age: 80 Year
  Sex: Male

DRUGS (6)
  1. HUMALOG 25% LISPRO, 75% NPL [Suspect]
     Indication: TYPE 2 DIABETES MELLITUS
     Dosage: 40 U, EACH MORNING
     Route: 058
     Dates: start: 201302, end: 20130429
  2. HUMALOG 25% LISPRO, 75% NPL [Suspect]
     Dosage: 12 U, EACH EVENING
     Route: 058
     Dates: start: 201302, end: 20130429
  3. HUMALOG 25% LISPRO, 75% NPL [Suspect]
     Dosage: 40 U, EACH MORNING
     Dates: start: 20130502
  4. HUMALOG 25% LISPRO, 75% NPL [Suspect]
     Dosage: 12 U, EACH EVENING
     Dates: start: 20130502
  5. HUMALOG 25% LISPRO, 75% NPL [Suspect]
     Dosage: 38 U, EACH MORNING
  6. HUMALOG 25% LISPRO, 75% NPL [Suspect]
     Dosage: 10 U, EACH EVENING

REACTIONS (2)
  - Food poisoning [Recovering/Resolving]
  - Hypoglycaemia [Recovered/Resolved]
